APPROVED DRUG PRODUCT: FLUOXETINE HYDROCHLORIDE
Active Ingredient: FLUOXETINE HYDROCHLORIDE
Strength: EQ 40MG BASE
Dosage Form/Route: CAPSULE;ORAL
Application: A076251 | Product #001
Applicant: BARR LABORATORIES INC
Approved: May 18, 2005 | RLD: No | RS: No | Type: DISCN